FAERS Safety Report 20784932 (Version 3)
Quarter: 2022Q2

REPORT INFORMATION
  Report Type: Spontaneous
  Country: US (occurrence: US)
  Receive Date: 20220504
  Receipt Date: 20220627
  Transmission Date: 20220721
  Serious: No
  Sender: FDA-Public Use
  Company Number: US-PFIZER INC-202200133471

PATIENT
  Age: 59 Year
  Sex: Female

DRUGS (3)
  1. XELJANZ XR [Suspect]
     Active Substance: TOFACITINIB CITRATE
     Dosage: 11 MG
     Dates: start: 20220120
  2. XELJANZ XR [Suspect]
     Active Substance: TOFACITINIB CITRATE
     Dosage: 11 MG
     Dates: start: 20220121
  3. XELJANZ XR [Suspect]
     Active Substance: TOFACITINIB CITRATE
     Dosage: 11 MG, DAILY
     Dates: start: 20220218, end: 20220623

REACTIONS (15)
  - Drug ineffective [Unknown]
  - Therapeutic product effect decreased [Unknown]
  - Vulvovaginal pruritus [Recovered/Resolved]
  - Diarrhoea [Recovered/Resolved]
  - Genital infection fungal [Unknown]
  - Dry skin [Unknown]
  - Trichorrhexis [Unknown]
  - Hypersensitivity [Unknown]
  - Nasal congestion [Unknown]
  - COVID-19 [Recovered/Resolved]
  - Rash [Unknown]
  - Furuncle [Unknown]
  - Arthritis [Unknown]
  - Musculoskeletal stiffness [Unknown]
  - Skin infection [Unknown]

NARRATIVE: CASE EVENT DATE: 20220101
